FAERS Safety Report 9443516 (Version 2)
Quarter: 2013Q3

REPORT INFORMATION
  Report Type: Spontaneous
  Country: US (occurrence: US)
  Receive Date: 20130806
  Receipt Date: 20130813
  Transmission Date: 20140515
  Serious: Yes (Death, Hospitalization)
  Sender: FDA-Public Use
  Company Number: US-BAYER-2013-093118

PATIENT
  Age: 80 Year
  Sex: Male

DRUGS (6)
  1. MOXIFLOXACIN ORAL [Suspect]
     Indication: PNEUMONIA
     Dosage: UNK
  2. WARFARIN [Suspect]
     Indication: DEEP VEIN THROMBOSIS
     Dosage: 5 MG, HS
  3. WARFARIN [Suspect]
     Indication: DEEP VEIN THROMBOSIS
     Dosage: 5 MG, HS
  4. VANCOMYCIN [Concomitant]
     Indication: ANTIBIOTIC THERAPY
  5. METRONIDAZOLE [Concomitant]
     Indication: ANTIBIOTIC THERAPY
  6. CEFTRIAXONE [Concomitant]
     Indication: ANTIBIOTIC THERAPY

REACTIONS (6)
  - International normalised ratio increased [Recovered/Resolved]
  - Respiratory failure [Fatal]
  - Renal failure [Fatal]
  - Cardiac failure [Fatal]
  - Sepsis [Fatal]
  - Drug interaction [None]
